FAERS Safety Report 14600874 (Version 1)
Quarter: 2018Q1

REPORT INFORMATION
  Report Type: Spontaneous
  Country: GR (occurrence: GR)
  Receive Date: 20180305
  Receipt Date: 20180305
  Transmission Date: 20180509
  Serious: Yes (Death)
  Sender: FDA-Public Use
  Company Number: GR-PFIZER INC-2018088379

PATIENT
  Age: 78 Year
  Sex: Female

DRUGS (1)
  1. METHOTREXATE SODIUM. [Suspect]
     Active Substance: METHOTREXATE SODIUM
     Dosage: 1 TABLET IN THE MORNING, 2 TABLETS AT NOON, 2 TABLETS AT NIGHT ONCE A WEEK
     Dates: start: 201705

REACTIONS (2)
  - Accidental overdose [Unknown]
  - Death [Fatal]

NARRATIVE: CASE EVENT DATE: 201706
